FAERS Safety Report 4408186-X (Version None)
Quarter: 2004Q3

REPORT INFORMATION
  Report Type: 
  Country: None (occurrence: None)
  Receive Date: 20040722
  Receipt Date: 20040714
  Transmission Date: 20050211
  Serious: Yes (Life-Threatening, Hospitalization)
  Sender: FDA-Public Use
  Company Number: 03P-087-0212200-00

PATIENT
  Age: 34 Year
  Sex: Male

DRUGS (10)
  1. KALETRA [Suspect]
     Indication: HIV INFECTION
     Dosage: 6 CAPSULE, 1 IN 1 D, PER ORAL
     Route: 048
     Dates: start: 20010806, end: 20020311
  2. KALETRA [Suspect]
     Indication: HIV INFECTION
     Dosage: 6 CAPSULE, 1 IN 1 D, PER ORAL
     Route: 048
     Dates: start: 20020328
  3. STAVUDINE [Suspect]
     Indication: HIV INFECTION
     Dosage: 60 MG, 1 IN 1 D, PER ORAL
     Route: 048
     Dates: start: 20010806, end: 20020311
  4. ABACAVIR [Suspect]
     Indication: HIV INFECTION
     Dosage: 600 MG, 1 IN 1 D, PER ORAL
     Route: 048
     Dates: start: 20011022, end: 20020311
  5. LAMIVUDINE [Suspect]
     Indication: HIV INFECTION
     Dosage: 300 MG, 1 IN 1 D, PER ORAL
     Route: 048
     Dates: start: 20010806, end: 20011021
  6. NELFINAVIR MESILATE [Suspect]
     Indication: HIV INFECTION
     Dosage: 2500 MG, 1 IN 1 D, PER ORAL
     Route: 048
     Dates: start: 20010806, end: 20011021
  7. FACTOR IX COMPLEX [Concomitant]
  8. TENOFOVIR [Concomitant]
  9. FLUCONAZOLE [Concomitant]
  10. BECLOMETHASONE DIPROPIONATE [Concomitant]

REACTIONS (7)
  - ABDOMINAL PAIN UPPER [None]
  - DIARRHOEA [None]
  - DYSPNOEA [None]
  - GASTROINTESTINAL DISORDER [None]
  - GUILLAIN-BARRE SYNDROME [None]
  - LIPODYSTROPHY ACQUIRED [None]
  - NAUSEA [None]
